FAERS Safety Report 21068489 (Version 1)
Quarter: 2022Q3

REPORT INFORMATION
  Report Type: Spontaneous
  Country: US (occurrence: None)
  Receive Date: 20220711
  Receipt Date: 20220711
  Transmission Date: 20221026
  Serious: Yes (Hospitalization)
  Sender: FDA-Public Use
  Company Number: None

PATIENT
  Age: 51 Year
  Sex: Female
  Weight: 60.1 kg

DRUGS (1)
  1. YESCARTA [Suspect]
     Active Substance: AXICABTAGENE CILOLEUCEL
     Indication: Follicular lymphoma stage III
     Dates: start: 20220330, end: 20220330

REACTIONS (3)
  - Cytokine release syndrome [None]
  - Neurotoxicity [None]
  - Seizure [None]

NARRATIVE: CASE EVENT DATE: 20220401
